FAERS Safety Report 4482688-2 (Version None)
Quarter: 2004Q4

REPORT INFORMATION
  Report Type: 
  Country: None (occurrence: None)
  Receive Date: 20041022
  Receipt Date: 20041018
  Transmission Date: 20050328
  Serious: Yes (Other)
  Sender: FDA-Public Use
  Company Number: PHRM2004FR03125

PATIENT
  Age: 13 Year
  Sex: Male

DRUGS (2)
  1. RITALIN [Suspect]
     Indication: ATTENTION DEFICIT/HYPERACTIVITY DISORDER
     Dosage: 50 MG/DAY
     Route: 048
  2. PARACETAMOL [Suspect]
     Indication: RHINITIS
     Dosage: 500 MG/DAY
     Route: 048

REACTIONS (2)
  - DRUG INTERACTION [None]
  - TACHYCARDIA [None]
